FAERS Safety Report 19216442 (Version 1)
Quarter: 2021Q2

REPORT INFORMATION
  Report Type: Spontaneous
  Country: IL (occurrence: IL)
  Receive Date: 20210505
  Receipt Date: 20210505
  Transmission Date: 20210717
  Serious: Yes (Other)
  Sender: FDA-Public Use
  Company Number: NVSC2021IL097625

PATIENT
  Age: 19 Year
  Sex: Male

DRUGS (5)
  1. CALCITONIN [Suspect]
     Active Substance: CALCITONIN
     Indication: BONE GIANT CELL TUMOUR BENIGN
     Dosage: UNK
     Route: 006
  2. RECLAST [Suspect]
     Active Substance: ZOLEDRONIC ACID
     Indication: BONE GIANT CELL TUMOUR BENIGN
     Dosage: UNK
     Route: 065
  3. INTERFERON [Suspect]
     Active Substance: INTERFERON
     Indication: BONE GIANT CELL TUMOUR BENIGN
     Dosage: UNK
     Route: 058
  4. IMATINIB. [Suspect]
     Active Substance: IMATINIB MESYLATE
     Indication: BONE GIANT CELL TUMOUR BENIGN
     Dosage: UNK
     Route: 065
  5. COLCHICIN [Suspect]
     Active Substance: COLCHICINE
     Indication: BONE GIANT CELL TUMOUR BENIGN
     Dosage: UNK
     Route: 048

REACTIONS (3)
  - Bone giant cell tumour benign [Unknown]
  - Product use in unapproved indication [Unknown]
  - Neoplasm progression [Unknown]
